FAERS Safety Report 6028497-4 (Version None)
Quarter: 2008Q4

REPORT INFORMATION
  Report Type: 
  Country: None (occurrence: None)
  Receive Date: 20081230
  Receipt Date: 20081215
  Transmission Date: 20090506
  Serious: Yes (Hospitalization)
  Sender: FDA-Public Use
  Company Number: TPH-00127

PATIENT
  Age: 44 Year
  Sex: Female

DRUGS (1)
  1. TRIQUILAR (ETHINYL ESTRADIOL AND LEVONORGESTREL) [Suspect]
     Indication: ORAL CONTRACEPTION
     Dosage: 1 DF
     Route: 048

REACTIONS (3)
  - CEREBRAL INFARCTION [None]
  - HEMIPARESIS [None]
  - SPEECH DISORDER [None]
